FAERS Safety Report 9499185 (Version 4)
Quarter: 2014Q2

REPORT INFORMATION
  Report Type: Spontaneous
  Country: JP (occurrence: JP)
  Receive Date: 20130905
  Receipt Date: 20140409
  Transmission Date: 20141212
  Serious: Yes (Hospitalization, Other)
  Sender: FDA-Public Use
  Company Number: JP-AMGEN-JPNSP2013061539

PATIENT
  Age: 68 Year
  Sex: Female
  Weight: 40.9 kg

DRUGS (20)
  1. ENBREL [Suspect]
     Indication: RHEUMATOID ARTHRITIS
     Dosage: 25 MG, WEEKLY
     Route: 058
     Dates: start: 20110630, end: 2011
  2. ENBREL [Suspect]
     Dosage: 50 MG, WEEKLY
     Route: 058
     Dates: start: 20111213, end: 20131008
  3. METOLATE [Suspect]
     Indication: RHEUMATOID ARTHRITIS
     Dosage: 4 MG, WEEKLY
     Route: 048
     Dates: start: 20110420
  4. METOLATE [Suspect]
     Dosage: 6 MG, WEEKLY
     Route: 048
     Dates: start: 20110427
  5. METOLATE [Suspect]
     Dosage: 8 MG, WEEKLY
     Route: 048
     Dates: start: 20110505, end: 20120306
  6. METOLATE [Suspect]
     Dosage: 10 MG, WEEKLY
     Route: 048
     Dates: start: 20120403
  7. METOLATE [Suspect]
     Dosage: 2MG IN AM AND 1 TABLET IN PM ON WEDS, 1.5 TABLETS OF 2MG ON THRUS
     Route: 048
     Dates: start: 20130618, end: 20130708
  8. METOLATE [Suspect]
     Dosage: 9 MG, WEEKLY
     Route: 048
     Dates: start: 20130409, end: 20130709
  9. METOLATE [Suspect]
     Dosage: 9 MG, WEEKLY
     Route: 048
     Dates: start: 20130723, end: 20131017
  10. PREDNISOLONE [Concomitant]
     Indication: RHEUMATOID ARTHRITIS
     Dosage: 5 MG, 1X/DAY
     Dates: start: 20110405, end: 20111213
  11. PREDNISOLONE [Concomitant]
     Dosage: 4 MG, 1X/DAY
     Dates: start: 20120306, end: 20120306
  12. PREDNISOLONE [Concomitant]
     Dosage: 5 MG, 1X/DAY
     Dates: start: 20120403, end: 20131017
  13. CERTOLIZUMAB PEGOL [Concomitant]
     Indication: RHEUMATOID ARTHRITIS
     Dosage: 400 MG, UNK
     Dates: start: 20131017
  14. PROGRAF [Concomitant]
     Indication: RHEUMATOID ARTHRITIS
     Dosage: 1 MG, UNK
     Dates: start: 20130618, end: 20131008
  15. LEUCOVORIN                         /00566701/ [Concomitant]
     Dosage: 5 MG, 1X/DAY
     Route: 048
  16. BONALON [Concomitant]
     Dosage: 35 MG, 1X/DAY
     Route: 048
  17. MAGMITT [Concomitant]
     Dosage: 330 MG, 2X/DAY
     Route: 048
  18. CONIEL [Concomitant]
     Dosage: 4 MG, 1X/DAY
     Route: 048
  19. CELECOX [Concomitant]
     Dosage: 200 MG, 2X/DAY
     Route: 048
  20. JZOLOFT [Concomitant]
     Dosage: 25 MG, 2X/DAY
     Route: 048

REACTIONS (2)
  - Rheumatoid arthritis [Unknown]
  - Glomerulonephritis membranous [Recovering/Resolving]
